FAERS Safety Report 12524455 (Version 1)
Quarter: 2016Q3

REPORT INFORMATION
  Report Type: Other
  Country: US (occurrence: US)
  Receive Date: 20160704
  Receipt Date: 20160704
  Transmission Date: 20161109
  Serious: Yes (Other)
  Sender: FDA-Public Use
  Company Number: US-LUPIN PHARMACEUTICALS INC.-2016-02895

PATIENT
  Age: 28 Year
  Sex: Male

DRUGS (7)
  1. ZIPRASIDONE. [Suspect]
     Active Substance: ZIPRASIDONE
     Indication: SCHIZOAFFECTIVE DISORDER
     Route: 065
  2. ZIPRASIDONE. [Suspect]
     Active Substance: ZIPRASIDONE
     Dosage: 40 MG IN THE MORNING AND 80 MG AT MIGHT
     Route: 065
  3. ZIPRASIDONE. [Suspect]
     Active Substance: ZIPRASIDONE
     Dosage: 40 MG IN THE MORNING AND 80 MG AT NIGHT
     Route: 065
  4. ZIPRASIDONE. [Suspect]
     Active Substance: ZIPRASIDONE
     Dosage: IN THE MORNING
     Route: 065
  5. ZIPRASIDONE. [Suspect]
     Active Substance: ZIPRASIDONE
     Dosage: 40 MG IN THE MORNING AND 60 MG AT NIGHT
     Route: 065
  6. ZIPRASIDONE. [Suspect]
     Active Substance: ZIPRASIDONE
     Route: 065
  7. ZIPRASIDONE. [Suspect]
     Active Substance: ZIPRASIDONE
     Route: 065

REACTIONS (4)
  - Sleep-related eating disorder [Recovered/Resolved]
  - Sedation [Recovered/Resolved]
  - Somnambulism [Recovered/Resolved]
  - Insomnia [Recovered/Resolved]
